FAERS Safety Report 8371996-0 (Version None)
Quarter: 2012Q2

REPORT INFORMATION
  Report Type: 
  Country: None (occurrence: None)
  Receive Date: 20120518
  Receipt Date: 20120209
  Transmission Date: 20120825
  Serious: Yes (Hospitalization)
  Sender: FDA-Public Use
  Company Number: US-ROCHE-371684

PATIENT
  Sex: Female

DRUGS (3)
  1. HERCEPTIN [Suspect]
     Indication: BREAST NEOPLASM
     Dosage: EVERY WEEK FOR 3 WEEKS OF A 28 DAY CYCLE.
     Route: 042
  2. PACLITAXEL AND PACLITAXEL [Suspect]
     Indication: BREAST NEOPLASM
     Dosage: EVERY WEEK FOR 3 WEEKS OF A 28 DAY CYCLE.
     Route: 042
  3. TARCEVA [Suspect]
     Indication: BREAST NEOPLASM
     Route: 048

REACTIONS (3)
  - INFECTION [None]
  - PULMONARY EMBOLISM [None]
  - EMBOLISM [None]
